FAERS Safety Report 14966224 (Version 1)
Quarter: 2018Q2

REPORT INFORMATION
  Report Type: Spontaneous
  Country: US (occurrence: US)
  Receive Date: 20180603
  Receipt Date: 20180603
  Transmission Date: 20180711
  Serious: No
  Sender: FDA-Public Use
  Company Number: US-ASTRAZENECA-2018SE63209

PATIENT
  Sex: Male

DRUGS (8)
  1. ELIQIUOS [Concomitant]
  2. CARBIDOPA. [Concomitant]
     Active Substance: CARBIDOPA
  3. CARVIDOLOL [Concomitant]
  4. BRILINTA [Suspect]
     Active Substance: TICAGRELOR
     Route: 048
  5. AMANTADINE. [Concomitant]
     Active Substance: AMANTADINE HYDROCHLORIDE
  6. LEVODOPA [Concomitant]
     Active Substance: LEVODOPA
  7. STILEVO [Concomitant]
  8. EYE DROPS [Concomitant]
     Active Substance: UNSPECIFIED INGREDIENT

REACTIONS (2)
  - Feeling abnormal [Unknown]
  - Dyskinesia [Unknown]
